FAERS Safety Report 16939830 (Version 1)
Quarter: 2019Q4

REPORT INFORMATION
  Report Type: Spontaneous
  Country: DE (occurrence: DE)
  Receive Date: 20191021
  Receipt Date: 20191021
  Transmission Date: 20200122
  Serious: Yes (Other)
  Sender: FDA-Public Use
  Company Number: DE-US-PROVELL PHARMACEUTICALS LLC-E2B_90071408

PATIENT
  Sex: Female

DRUGS (1)
  1. EUTHYROX NF [Suspect]
     Active Substance: LEVOTHYROXINE SODIUM
     Indication: POST PROCEDURAL HYPOTHYROIDISM

REACTIONS (6)
  - Tachycardia [Unknown]
  - Cold sweat [Unknown]
  - Nausea [Unknown]
  - Hypertension [Unknown]
  - Fatigue [Unknown]
  - Arrhythmia [Unknown]
